FAERS Safety Report 4742651-0 (Version None)
Quarter: 2005Q3

REPORT INFORMATION
  Report Type: 
  Country: None (occurrence: None)
  Receive Date: 20050811
  Receipt Date: 20041125
  Transmission Date: 20060218
  Serious: Yes (Other)
  Sender: FDA-Public Use
  Company Number: US-GLAXOSMITHKLINE-A0535300A

PATIENT
  Age: 26 Year
  Sex: Female

DRUGS (1)
  1. BC HEADACHE POWDER [Suspect]
     Indication: HEADACHE
     Dosage: 8PACK PER DAY
     Route: 048

REACTIONS (31)
  - ABDOMINAL PAIN UPPER [None]
  - ANGER [None]
  - BIPOLAR DISORDER [None]
  - CHEST PAIN [None]
  - CONFUSIONAL STATE [None]
  - CRYING [None]
  - DEPENDENCE [None]
  - DRUG ABUSER [None]
  - DRUG WITHDRAWAL SYNDROME [None]
  - DYSPNOEA [None]
  - EXTENSOR PLANTAR RESPONSE [None]
  - FEELING ABNORMAL [None]
  - GASTRIC DISORDER [None]
  - GASTRIC ULCER [None]
  - GASTRITIS [None]
  - HAEMORRHAGE [None]
  - HEADACHE [None]
  - INSOMNIA [None]
  - INTENTIONAL MISUSE [None]
  - IRRITABILITY [None]
  - MOOD SWINGS [None]
  - NAUSEA [None]
  - PEPTIC ULCER [None]
  - PHONOPHOBIA [None]
  - PHOTOPHOBIA [None]
  - PSYCHOMOTOR HYPERACTIVITY [None]
  - SINUSITIS [None]
  - SLEEP APNOEA SYNDROME [None]
  - TINNITUS [None]
  - TREMOR [None]
  - VOMITING [None]
